FAERS Safety Report 20909573 (Version 2)
Quarter: 2022Q3

REPORT INFORMATION
  Report Type: Spontaneous
  Country: US (occurrence: US)
  Receive Date: 20220603
  Receipt Date: 20220715
  Transmission Date: 20221027
  Serious: No
  Sender: FDA-Public Use
  Company Number: US-BRISTOL-MYERS SQUIBB COMPANY-2022-036280

PATIENT
  Age: 59 Year
  Sex: Male

DRUGS (1)
  1. POMALYST [Suspect]
     Active Substance: POMALIDOMIDE
     Indication: Product used for unknown indication
     Dosage: FREQ; PRN?DAILY FOR 21 DAYS
     Route: 048
     Dates: start: 202105

REACTIONS (2)
  - Productive cough [Unknown]
  - Fatigue [Unknown]

NARRATIVE: CASE EVENT DATE: 20210506
